FAERS Safety Report 4386186-6 (Version None)
Quarter: 2004Q2

REPORT INFORMATION
  Report Type: 
  Country: None (occurrence: None)
  Receive Date: 20040623
  Receipt Date: 20040614
  Transmission Date: 20050107
  Serious: Yes (Life-Threatening)
  Sender: FDA-Public Use
  Company Number: NO-JNJFOC-20040603424

PATIENT
  Age: 36 Year
  Sex: Female

DRUGS (7)
  1. REMICADE [Suspect]
     Indication: PSORIATIC ARTHROPATHY
     Dosage: 200 MG, 1 IN 1 MONTH, INTRAVENOUS
     Route: 042
     Dates: start: 20040101, end: 20040601
  2. FRAGMIN [Concomitant]
  3. ACETAMINOPHEN [Concomitant]
  4. FERRO-RETARD (FERROUS SULFATE) [Concomitant]
  5. OXYCONTIN [Concomitant]
  6. FOLIC ACID [Concomitant]
  7. OMEGA-3 (OMEGA-3 TRIGLYCERIDES) [Concomitant]

REACTIONS (5)
  - ANXIETY [None]
  - DYSPNOEA [None]
  - HYPOTENSION [None]
  - INFUSION RELATED REACTION [None]
  - TACHYCARDIA [None]
